FAERS Safety Report 9645661 (Version 2)
Quarter: 2013Q4

REPORT INFORMATION
  Report Type: Spontaneous
  Country: BR (occurrence: BR)
  Receive Date: 20131025
  Receipt Date: 20131126
  Transmission Date: 20140711
  Serious: Yes (Other)
  Sender: FDA-Public Use
  Company Number: PHHY2013BR120775

PATIENT
  Sex: Female

DRUGS (4)
  1. ACLASTA [Suspect]
     Indication: OSTEOPOROSIS
     Dosage: UNK
     Route: 042
     Dates: start: 2009
  2. ACLASTA [Suspect]
     Dosage: UNK
     Route: 042
     Dates: start: 2010
  3. ACLASTA [Suspect]
     Dosage: UNK
     Route: 042
     Dates: start: 2011
  4. ACLASTA [Suspect]
     Dosage: UNK
     Route: 042
     Dates: start: 2012

REACTIONS (6)
  - Accident [Unknown]
  - Lumbar vertebral fracture [Unknown]
  - Patella fracture [Unknown]
  - Tibia fracture [Unknown]
  - Foot fracture [Unknown]
  - Drug ineffective [Unknown]
